FAERS Safety Report 20745792 (Version 1)
Quarter: 2022Q2

REPORT INFORMATION
  Report Type: Spontaneous
  Country: US (occurrence: None)
  Receive Date: 20220423
  Receipt Date: 20220423
  Transmission Date: 20220720
  Serious: No
  Sender: FDA-Public Use
  Company Number: None

PATIENT
  Age: 40 Year
  Sex: Female
  Weight: 67.5 kg

DRUGS (6)
  1. LEVAQUIN [Suspect]
     Active Substance: LEVOFLOXACIN
     Dosage: OTHER QUANTITY : 1 TABLET(S);?
     Route: 048
     Dates: start: 20220409, end: 20220418
  2. GABAPENTIN [Concomitant]
     Active Substance: GABAPENTIN
  3. Lemichtal [Concomitant]
  4. NORETHINDRONE [Concomitant]
     Active Substance: NORETHINDRONE
  5. Acetate [Concomitant]
  6. Prenatal vitamin DHA [Concomitant]

REACTIONS (6)
  - Anxiety [None]
  - Depression [None]
  - Obsessive thoughts [None]
  - Hallucination, visual [None]
  - Insomnia [None]
  - Palpitations [None]

NARRATIVE: CASE EVENT DATE: 20220414
